FAERS Safety Report 6356972-1 (Version None)
Quarter: 2009Q3

REPORT INFORMATION
  Report Type: 
  Country: None (occurrence: None)
  Receive Date: 20090915
  Receipt Date: 20090902
  Transmission Date: 20100115
  Serious: Yes (Hospitalization)
  Sender: FDA-Public Use
  Company Number: GB-JNJCH-2009024516

PATIENT
  Age: 6 Month

DRUGS (1)
  1. ACETAMINOPHEN [Suspect]
     Indication: DRUG USE FOR UNKNOWN INDICATION
     Dosage: TEXT:2.5 TSP THREE OR FOUR TIMES
     Route: 048

REACTIONS (2)
  - ACCIDENTAL OVERDOSE [None]
  - OVERDOSE [None]
